FAERS Safety Report 22591578 (Version 1)
Quarter: 2023Q2

REPORT INFORMATION
  Report Type: Spontaneous
  Country: US (occurrence: US)
  Receive Date: 20230612
  Receipt Date: 20230612
  Transmission Date: 20230721
  Serious: Yes (Other)
  Sender: FDA-Public Use
  Company Number: US-BEH-2023159671

PATIENT
  Sex: Female

DRUGS (1)
  1. HIZENTRA [Suspect]
     Active Substance: HUMAN IMMUNOGLOBULIN G
     Indication: Congenital hypogammaglobulinaemia
     Dosage: 11 GRAM, QW
     Route: 058
     Dates: start: 202010

REACTIONS (5)
  - Renal impairment [Unknown]
  - Urine output decreased [Unknown]
  - Decreased appetite [Unknown]
  - Kidney infection [Unknown]
  - Nephrolithiasis [Unknown]
